FAERS Safety Report 15661996 (Version 3)
Quarter: 2018Q4

REPORT INFORMATION
  Report Type: Spontaneous
  Country: JP (occurrence: JP)
  Receive Date: 20181127
  Receipt Date: 20181127
  Transmission Date: 20190205
  Serious: Yes (Hospitalization, Other)
  Sender: FDA-Public Use
  Company Number: PHHY2018JP161075

PATIENT
  Age: 63 Year
  Sex: Female

DRUGS (2)
  1. METHOTREXATE. [Suspect]
     Active Substance: METHOTREXATE
     Indication: RHEUMATOID ARTHRITIS
     Route: 048
  2. PREDNISOLONE. [Suspect]
     Active Substance: PREDNISOLONE
     Indication: RHEUMATOID ARTHRITIS
     Route: 048

REACTIONS (7)
  - Cerebrovascular accident [Recovering/Resolving]
  - Viral vasculitis [Recovering/Resolving]
  - Hemiplegia [Recovering/Resolving]
  - Glossopharyngeal nerve paralysis [Recovering/Resolving]
  - Varicella zoster virus infection [Recovered/Resolved]
  - Vagus nerve paralysis [Recovering/Resolving]
  - Facial paralysis [Recovering/Resolving]
